FAERS Safety Report 5166500-4 (Version None)
Quarter: 2006Q4

REPORT INFORMATION
  Report Type: 
  Country: None (occurrence: None)
  Receive Date: 20061207
  Receipt Date: 20061127
  Transmission Date: 20070319
  Serious: Yes (Other)
  Sender: FDA-Public Use
  Company Number: ES-BRISTOL-MYERS SQUIBB COMPANY-13590914

PATIENT
  Age: 49 Year
  Sex: Male

DRUGS (2)
  1. CISPLATIN [Suspect]
     Indication: BRONCHIOLOALVEOLAR CARCINOMA
     Dates: start: 20030601, end: 20031001
  2. VINORELBINE [Suspect]
     Indication: BRONCHIOLOALVEOLAR CARCINOMA
     Dates: start: 20030601, end: 20031001

REACTIONS (1)
  - ACUTE PULMONARY OEDEMA [None]
